FAERS Safety Report 4609498-7 (Version None)
Quarter: 2005Q1

REPORT INFORMATION
  Report Type: 
  Country: None (occurrence: None)
  Receive Date: 20050314
  Receipt Date: 20050314
  Transmission Date: 20050727
  Serious: Yes (Hospitalization)
  Sender: FDA-Public Use
  Company Number: None

PATIENT
  Age: 79 Year
  Sex: Male

DRUGS (8)
  1. WARFARIN [Suspect]
     Indication: ATRIAL FIBRILLATION
     Dosage: SEE IMAGE
     Dates: start: 20040201
  2. FUROSEMIDE [Concomitant]
  3. DILTIAZEM [Concomitant]
  4. GLYBURIDE [Concomitant]
  5. PROPOXYPHENE HCL [Concomitant]
  6. DIGOXIN [Concomitant]
  7. OMEPRAZOLE [Concomitant]
  8. GEMFIBROZIL [Concomitant]

REACTIONS (3)
  - ANAEMIA [None]
  - CONTUSION [None]
  - GASTROINTESTINAL HAEMORRHAGE [None]
